FAERS Safety Report 12499575 (Version 1)
Quarter: 2016Q2

REPORT INFORMATION
  Report Type: Spontaneous
  Country: US (occurrence: None)
  Receive Date: 20160624
  Receipt Date: 20160624
  Transmission Date: 20160815
  Serious: Yes (Hospitalization)
  Sender: FDA-Public Use
  Company Number: None

PATIENT
  Age: 50 Year
  Sex: Female
  Weight: 55.6 kg

DRUGS (2)
  1. GEMCITABINE [Suspect]
     Active Substance: GEMCITABINE\GEMCITABINE HYDROCHLORIDE
     Indication: ADENOCARCINOMA PANCREAS
     Route: 042
     Dates: start: 20160509
  2. RADIATION THERAPY [Suspect]
     Active Substance: RADIATION THERAPY
     Indication: ADENOCARCINOMA PANCREAS
     Dosage: 29 DAYS
     Dates: start: 20160509, end: 20160607

REACTIONS (5)
  - Vomiting [None]
  - Anaemia [None]
  - Abdominal pain upper [None]
  - Nausea [None]
  - Chest pain [None]

NARRATIVE: CASE EVENT DATE: 20160612
